FAERS Safety Report 9683574 (Version 1)
Quarter: 2013Q4

REPORT INFORMATION
  Report Type: Spontaneous
  Country: FR (occurrence: FR)
  Receive Date: 20131112
  Receipt Date: 20131112
  Transmission Date: 20140711
  Serious: Yes (Other)
  Sender: FDA-Public Use
  Company Number: FR-ALEXION PHARMACEUTICALS INC.-A201302862

PATIENT
  Age: 45 Year
  Sex: Female

DRUGS (2)
  1. SOLIRIS 300MG [Suspect]
     Indication: OFF LABEL USE
     Dosage: 900 MG, QW
     Route: 042
  2. ORACILLIN [Concomitant]
     Indication: PROPHYLAXIS
     Dosage: UNK

REACTIONS (3)
  - Renal tubular necrosis [Unknown]
  - Nephropathy toxic [Unknown]
  - Off label use [Unknown]
